FAERS Safety Report 7378718-0 (Version None)
Quarter: 2011Q1

REPORT INFORMATION
  Report Type: 
  Country: None (occurrence: None)
  Receive Date: 20110328
  Receipt Date: 20110318
  Transmission Date: 20110831
  Serious: Yes (Hospitalization)
  Sender: FDA-Public Use
  Company Number: US-B.I. PHARMACEUTICALS,INC./RIDGEFIELD-2011-DE-01865GD

PATIENT
  Sex: Male

DRUGS (1)
  1. DABIGATRAN [Suspect]
     Dosage: 300 MG
     Route: 048

REACTIONS (5)
  - HAEMOGLOBIN DECREASED [None]
  - GASTROINTESTINAL HAEMORRHAGE [None]
  - ASTHENIA [None]
  - HAEMATOCRIT DECREASED [None]
  - MELAENA [None]
